FAERS Safety Report 20512507 (Version 2)
Quarter: 2022Q1

REPORT INFORMATION
  Report Type: Spontaneous
  Country: US (occurrence: US)
  Receive Date: 20220224
  Receipt Date: 20220331
  Transmission Date: 20220423
  Serious: Yes (Other)
  Sender: FDA-Public Use
  Company Number: US-PFIZER INC-202200291901

PATIENT
  Age: 62 Year
  Sex: Female
  Weight: 56.689 kg

DRUGS (5)
  1. COLESTID [Suspect]
     Active Substance: COLESTIPOL HYDROCHLORIDE
     Indication: Duodenogastric reflux
     Dosage: 1 G (AT NOON)
  2. COLESTID [Suspect]
     Active Substance: COLESTIPOL HYDROCHLORIDE
     Dosage: 10 MG, 2X/DAY
     Dates: start: 202105
  3. XANAX [Suspect]
     Active Substance: ALPRAZOLAM
     Dosage: UNK, AS NEEDED (IN THE MORNING ^WELL BEFORE COLESTID^/ INFREQUENTLY AND TAKE AS NEEDED)
  4. LINZESS [Suspect]
     Active Substance: LINACLOTIDE
     Dosage: UNK (IN THE MORNING ^WELL BEFORE COLESTID^)
  5. OMEPRAZOLE [Suspect]
     Active Substance: OMEPRAZOLE
     Dosage: UNK (IN THE MORNING ^WELL BEFORE COLESTID^)

REACTIONS (7)
  - Pancreatitis chronic [Unknown]
  - Gastrooesophageal reflux disease [Unknown]
  - Duodenogastric reflux [Unknown]
  - Irritable bowel syndrome [Unknown]
  - Blood glucose decreased [Unknown]
  - Hypoglycaemia [Unknown]
  - Somnolence [Unknown]
